FAERS Safety Report 14525242 (Version 2)
Quarter: 2018Q1

REPORT INFORMATION
  Report Type: Spontaneous
  Country: US (occurrence: US)
  Receive Date: 20180213
  Receipt Date: 20180214
  Transmission Date: 20180509
  Serious: Yes (Hospitalization)
  Sender: FDA-Public Use
  Company Number: US-JNJFOC-20180214053

PATIENT
  Age: 40 Year
  Sex: Female

DRUGS (1)
  1. INVOKANA [Suspect]
     Active Substance: CANAGLIFLOZIN
     Indication: TYPE 2 DIABETES MELLITUS
     Route: 048
     Dates: start: 20151009

REACTIONS (5)
  - Neuropathy peripheral [Unknown]
  - Arterial thrombosis [Unknown]
  - Peripheral artery occlusion [Unknown]
  - Peripheral ischaemia [Unknown]
  - Leg amputation [Unknown]

NARRATIVE: CASE EVENT DATE: 201511
